FAERS Safety Report 9717102 (Version 3)
Quarter: 2015Q3

REPORT INFORMATION
  Report Type: Spontaneous
  Country: US (occurrence: US)
  Receive Date: 20131127
  Receipt Date: 20150804
  Transmission Date: 20151125
  Serious: No
  Sender: FDA-Public Use
  Company Number: US-GILEAD-2009-0020739

PATIENT
  Age: 74 Year
  Sex: Female
  Weight: 92.53 kg

DRUGS (13)
  1. BROVANA [Concomitant]
     Active Substance: ARFORMOTEROL TARTRATE
  2. ASPIRIN. [Concomitant]
     Active Substance: ASPIRIN
  3. PROTONIX LIQUID [Concomitant]
  4. TAMOXIFEN [Concomitant]
     Active Substance: TAMOXIFEN
     Indication: BREAST CANCER
  5. PREDNISONE. [Concomitant]
     Active Substance: PREDNISONE
  6. LOVAZA [Concomitant]
     Active Substance: OMEGA-3-ACID ETHYL ESTERS
  7. HUMALOG [Concomitant]
     Active Substance: INSULIN LISPRO
     Indication: DIABETES MELLITUS
  8. LYRICA [Concomitant]
     Active Substance: PREGABALIN
  9. LETAIRIS [Suspect]
     Active Substance: AMBRISENTAN
     Indication: PULMONARY HYPERTENSION
     Route: 048
     Dates: start: 20080710
  10. PLAVIX [Concomitant]
     Active Substance: CLOPIDOGREL BISULFATE
  11. SERTALINE [Concomitant]
  12. LIPITOR [Concomitant]
     Active Substance: ATORVASTATIN CALCIUM
  13. CITRACAL PLUS D [Concomitant]

REACTIONS (1)
  - Fatigue [Recovering/Resolving]

NARRATIVE: CASE EVENT DATE: 20090227
